FAERS Safety Report 6107198-8 (Version None)
Quarter: 2009Q1

REPORT INFORMATION
  Report Type: 
  Country: None (occurrence: None)
  Receive Date: 20090305
  Receipt Date: 20090305
  Transmission Date: 20090719
  Serious: Yes (Other)
  Sender: FDA-Public Use
  Company Number: None

PATIENT

DRUGS (3)
  1. CITALOPRAM HYDROBROMIDE [Suspect]
     Indication: ANXIETY
     Dosage: 40 MG QD PO
     Route: 048
     Dates: start: 20080301
  2. SERTRALINE [Suspect]
     Indication: DEPRESSION
     Dosage: 50 MG QD PO
     Route: 048
     Dates: start: 20080428
  3. CELEXA [Concomitant]

REACTIONS (4)
  - AGITATION [None]
  - ANXIETY [None]
  - CONDITION AGGRAVATED [None]
  - IRRITABILITY [None]
